FAERS Safety Report 8360792-6 (Version None)
Quarter: 2012Q2

REPORT INFORMATION
  Report Type: 
  Country: None (occurrence: None)
  Receive Date: 20120515
  Receipt Date: 20120511
  Transmission Date: 20120825
  Serious: Yes (Hospitalization, Other)
  Sender: FDA-Public Use
  Company Number: US-PFIZER INC-2012068974

PATIENT
  Sex: Male
  Weight: 86.168 kg

DRUGS (7)
  1. ASPIRIN [Concomitant]
     Dosage: 162 MG, DAILY
     Route: 048
  2. LISINOPRIL [Concomitant]
     Dosage: 5 MG, DAILY
  3. LIPITOR [Suspect]
     Indication: ARTERIAL OCCLUSIVE DISEASE
     Dosage: 10 MG, DAILY
  4. LASIX [Concomitant]
     Indication: DIURETIC THERAPY
     Dosage: 40MG, DAILY
     Route: 048
  5. LIPITOR [Suspect]
     Dosage: 20 MG, DAILY
  6. METOPROLOL [Concomitant]
     Indication: HYPERTENSION
     Dosage: UNK, 2X/DAY
  7. COUMADIN [Concomitant]
     Dosage: 15 MG, 2X/DAY

REACTIONS (8)
  - BLOOD CREATININE INCREASED [None]
  - RED BLOOD CELL COUNT DECREASED [None]
  - RESPIRATORY DISORDER [None]
  - CORONARY ARTERY OCCLUSION [None]
  - MALAISE [None]
  - CARDIAC FAILURE CONGESTIVE [None]
  - PERIPHERAL ARTERIAL OCCLUSIVE DISEASE [None]
  - CARDIAC DISORDER [None]
